FAERS Safety Report 14493160 (Version 1)
Quarter: 2018Q1

REPORT INFORMATION
  Report Type: Report from Study
  Country: MX (occurrence: MX)
  Receive Date: 20180206
  Receipt Date: 20180206
  Transmission Date: 20180509
  Serious: Yes (Disabling, Other)
  Sender: FDA-Public Use
  Company Number: MX-UCBSA-2018003740

PATIENT
  Age: 1 Month
  Sex: Male
  Weight: 8 kg

DRUGS (13)
  1. VITAMIN C [Concomitant]
     Active Substance: ASCORBIC ACID
     Indication: PRODUCT USED FOR UNKNOWN INDICATION
     Dosage: 10 DF, ONCE DAILY (QD)
     Dates: start: 201707
  2. LEVETIRACETAM. [Suspect]
     Active Substance: LEVETIRACETAM
     Indication: SEIZURE
     Dosage: UNK
     Route: 042
     Dates: start: 201707, end: 20170727
  3. KEPPRA [Suspect]
     Active Substance: LEVETIRACETAM
     Dosage: 0.9 ML, ONCE DAILY (QD)
     Route: 048
     Dates: start: 2017, end: 2017
  4. FERROUS SULFATE. [Concomitant]
     Active Substance: FERROUS SULFATE
     Indication: PRODUCT USED FOR UNKNOWN INDICATION
     Dosage: 5 DF, ONCE DAILY (QD)
     Dates: start: 201707
  5. KEPPRA [Suspect]
     Active Substance: LEVETIRACETAM
     Indication: SEIZURE
     Dosage: 0.4 ML, ONCE DAILY (QD)
     Route: 048
     Dates: start: 20170727, end: 201708
  6. ILIADIN [Concomitant]
     Indication: INFLUENZA
     Dosage: 1 DF, 2X/DAY (BID)
  7. VITAMIN D [Concomitant]
     Active Substance: CHOLECALCIFEROL
     Indication: PRODUCT USED FOR UNKNOWN INDICATION
     Dosage: 10 DF, ONCE DAILY (QD)
     Dates: start: 201707
  8. KEPPRA [Suspect]
     Active Substance: LEVETIRACETAM
     Dosage: 1 ML, 2X/DAY (BID)
     Route: 048
     Dates: start: 20180118
  9. KEPPRA [Suspect]
     Active Substance: LEVETIRACETAM
     Dosage: 0.5 ML, ONCE DAILY (QD)
     Route: 048
     Dates: start: 2017, end: 2017
  10. ANTIFLU-DES [Concomitant]
     Indication: INFLUENZA
     Dosage: 16 DF, 3X/DAY (TID)
  11. KEPPRA [Suspect]
     Active Substance: LEVETIRACETAM
     Dosage: 0.7 ML, ONCE DAILY (QD)
     Route: 048
     Dates: start: 2017, end: 2017
  12. KEPPRA [Suspect]
     Active Substance: LEVETIRACETAM
     Dosage: 1 ML, ONCE DAILY (QD)
     Route: 048
     Dates: start: 2017
  13. VITAMIN A [Concomitant]
     Active Substance: VITAMIN A
     Indication: PRODUCT USED FOR UNKNOWN INDICATION
     Dosage: 10 DF, ONCE DAILY (QD)
     Dates: start: 201707

REACTIONS (4)
  - Off label use [Unknown]
  - Microcephaly [Not Recovered/Not Resolved]
  - Retinal detachment [Not Recovered/Not Resolved]
  - Influenza [Not Recovered/Not Resolved]

NARRATIVE: CASE EVENT DATE: 201707
